FAERS Safety Report 11525835 (Version 1)
Quarter: 2015Q3

REPORT INFORMATION
  Report Type: Spontaneous
  Country: US (occurrence: US)
  Receive Date: 20150918
  Receipt Date: 20150918
  Transmission Date: 20151125
  Serious: Yes (Other)
  Sender: FDA-Public Use
  Company Number: US-TAKEDA-TPA2012A03046

PATIENT
  Age: 71 Year
  Sex: Male
  Weight: 90.72 kg

DRUGS (8)
  1. AVANDIA [Concomitant]
     Active Substance: ROSIGLITAZONE MALEATE
     Dates: start: 20040315, end: 20041016
  2. ACTOS [Suspect]
     Active Substance: PIOGLITAZONE HYDROCHLORIDE
     Indication: TYPE 2 DIABETES MELLITUS
     Dates: start: 20020314, end: 20110621
  3. FORMATE [Concomitant]
     Dates: start: 20041020, end: 20050115
  4. GLUCOTROL [Concomitant]
     Active Substance: GLIPIZIDE
  5. AVANDIA [Concomitant]
     Active Substance: ROSIGLITAZONE MALEATE
     Dates: start: 20020626, end: 20021213
  6. INSULIN [Concomitant]
     Active Substance: INSULIN NOS
  7. DIABETA [Concomitant]
     Active Substance: GLYBURIDE
     Dates: start: 20050208, end: 20050308
  8. METFORMIN [Concomitant]
     Active Substance: METFORMIN HYDROCHLORIDE
     Dates: start: 20040315, end: 20111110

REACTIONS (1)
  - Bladder cancer [Unknown]

NARRATIVE: CASE EVENT DATE: 20090107
